FAERS Safety Report 23286542 (Version 1)
Quarter: 2023Q4

REPORT INFORMATION
  Report Type: Spontaneous
  Country: US (occurrence: US)
  Receive Date: 20231212
  Receipt Date: 20231212
  Transmission Date: 20240110
  Serious: Yes (Other)
  Sender: FDA-Public Use
  Company Number: US-OPELLA-2023OHG017042

PATIENT
  Sex: Female

DRUGS (2)
  1. DULCOLAX STIMULANT LAXATIVE [Suspect]
     Active Substance: BISACODYL
     Dates: start: 2013
  2. MIRALAX [Suspect]
     Active Substance: POLYETHYLENE GLYCOL 3350
     Indication: Product used for unknown indication
     Dates: start: 2013

REACTIONS (3)
  - Loss of consciousness [Unknown]
  - Vomiting [Unknown]
  - Dehydration [Unknown]
